FAERS Safety Report 5577206-1 (Version None)
Quarter: 2007Q4

REPORT INFORMATION
  Report Type: 
  Country: None (occurrence: None)
  Receive Date: 20071228
  Receipt Date: 20071227
  Transmission Date: 20080405
  Serious: Yes (Death, Hospitalization, Other)
  Sender: FDA-Public Use
  Company Number: PHBS2006JP11284

PATIENT
  Age: 41 Year
  Sex: Female

DRUGS (8)
  1. TEGRETOL [Suspect]
     Indication: CONVULSION
     Route: 048
  2. VALPROATE SODIUM [Interacting]
     Indication: CONVULSION
     Route: 065
  3. ZONISAMIDE [Interacting]
     Indication: CONVULSION
     Route: 048
  4. PREDNISONE TAB [Concomitant]
     Dosage: 30 MG/DAY
  5. PHENOBARBITAL TAB [Concomitant]
  6. IMMUNE GLOBULIN (HUMAN) [Concomitant]
  7. STEROIDS NOS [Concomitant]
  8. DIPRIVAN [Concomitant]
     Route: 065

REACTIONS (17)
  - CONVULSION [None]
  - CYTOMEGALOVIRUS VIRAEMIA [None]
  - DIARRHOEA [None]
  - DRUG INTERACTION [None]
  - DRUG RASH WITH EOSINOPHILIA AND SYSTEMIC SYMPTOMS [None]
  - ENTERITIS INFECTIOUS [None]
  - ENTEROCOLITIS [None]
  - HEPATIC ENCEPHALOPATHY [None]
  - HEPATOCELLULAR DAMAGE [None]
  - HUMAN HERPES VIRUS 6 SEROLOGY POSITIVE [None]
  - HYPOPROTEINAEMIA [None]
  - INTUBATION [None]
  - JAUNDICE [None]
  - MULTI-ORGAN FAILURE [None]
  - PNEUMOCYSTIS JIROVECI PNEUMONIA [None]
  - RASH [None]
  - STATUS EPILEPTICUS [None]
